FAERS Safety Report 7068915-6 (Version None)
Quarter: 2010Q4

REPORT INFORMATION
  Report Type: 
  Country: None (occurrence: None)
  Receive Date: 20101028
  Receipt Date: 20101013
  Transmission Date: 20110411
  Serious: Yes (Other)
  Sender: FDA-Public Use
  Company Number: US-AMGEN-USASP2010000123

PATIENT

DRUGS (1)
  1. NPLATE [Suspect]
     Dates: end: 20100923

REACTIONS (1)
  - THROMBOCYTOSIS [None]
